FAERS Safety Report 6447223-8 (Version None)
Quarter: 2009Q4

REPORT INFORMATION
  Report Type: 
  Country: None (occurrence: None)
  Receive Date: 20091119
  Receipt Date: 20091110
  Transmission Date: 20100525
  Serious: Yes (Hospitalization)
  Sender: FDA-Public Use
  Company Number: FR-ASTRAZENECA-2009SE25723

PATIENT
  Age: 67 Year
  Sex: Male

DRUGS (4)
  1. NEXIUM [Suspect]
     Route: 048
     Dates: start: 20090811, end: 20090909
  2. INIPOMP [Suspect]
     Indication: DUODENAL ULCER
     Route: 048
     Dates: start: 20040101, end: 20090914
  3. CRESTOR [Concomitant]
     Dates: start: 20040101, end: 20090901
  4. SOLUPRED [Concomitant]
     Dates: end: 20090909

REACTIONS (2)
  - EOSINOPHILIA [None]
  - URTICARIA [None]
